FAERS Safety Report 9707201 (Version 1)
Quarter: 2013Q4

REPORT INFORMATION
  Report Type: Spontaneous
  Country: US (occurrence: US)
  Receive Date: 20131125
  Receipt Date: 20131125
  Transmission Date: 20140711
  Serious: Yes (Hospitalization)
  Sender: FDA-Public Use
  Company Number: US-MYLANLABS-2013S1025642

PATIENT
  Age: 67 Year
  Sex: Female

DRUGS (3)
  1. VANCOMYCIN [Suspect]
     Indication: CELLULITIS
     Route: 042
  2. CEFTRIAXONE [Concomitant]
     Indication: CELLULITIS
     Route: 065
  3. CLINDAMYCIN [Concomitant]
     Indication: CELLULITIS
     Route: 042

REACTIONS (2)
  - Acute generalised exanthematous pustulosis [Recovering/Resolving]
  - Multi-organ failure [Recovering/Resolving]
